FAERS Safety Report 9342541 (Version 1)
Quarter: 2013Q2

REPORT INFORMATION
  Report Type: Spontaneous
  Country: US (occurrence: US)
  Receive Date: 20130611
  Receipt Date: 20130611
  Transmission Date: 20140414
  Serious: Yes (Other)
  Sender: FDA-Public Use
  Company Number: US-ELI_LILLY_AND_COMPANY-US201305009690

PATIENT
  Sex: Female

DRUGS (3)
  1. CYMBALTA [Suspect]
     Indication: FIBROMYALGIA
     Dosage: 30 MG, QD
  2. CYMBALTA [Suspect]
     Dosage: 30 MG, EACH EVENING
     Dates: start: 20130511
  3. AMBIEN [Concomitant]
     Dosage: UNK, UNKNOWN

REACTIONS (6)
  - Loss of consciousness [Unknown]
  - Tongue ulceration [Unknown]
  - Chapped lips [Unknown]
  - Stomatitis [Unknown]
  - Lethargy [Unknown]
  - Fatigue [Unknown]
